FAERS Safety Report 16816425 (Version 1)
Quarter: 2019Q3

REPORT INFORMATION
  Report Type: Spontaneous
  Country: US (occurrence: US)
  Receive Date: 20190917
  Receipt Date: 20190917
  Transmission Date: 20191005
  Serious: No
  Sender: FDA-Public Use
  Company Number: US-RECKITT BENCKISER HEALTHCARE INT LIMITED-RB-82857-2019

PATIENT
  Age: 27 Year
  Sex: Female

DRUGS (6)
  1. MUCINEX [Suspect]
     Active Substance: GUAIFENESIN
     Indication: UPPER RESPIRATORY TRACT CONGESTION
  2. MAXIMUM STRENGTH MUCINEX SINUS-MAX SEVERE CONGESTION AND PAIN [Suspect]
     Active Substance: ACETAMINOPHEN\GUAIFENESIN\PHENYLEPHRINE HYDROCHLORIDE
     Indication: RHINORRHOEA
     Dosage: 2 CAPLETS EVERY 4 HOURS, 1 WEEK WORTH
     Route: 065
  3. MAXIMUM STRENGTH MUCINEX SINUS-MAX SEVERE CONGESTION AND PAIN [Suspect]
     Active Substance: ACETAMINOPHEN\GUAIFENESIN\PHENYLEPHRINE HYDROCHLORIDE
     Indication: UPPER RESPIRATORY TRACT CONGESTION
  4. MAXIMUM STRENGTH MUCINEX SINUS-MAX SEVERE CONGESTION AND PAIN [Suspect]
     Active Substance: ACETAMINOPHEN\GUAIFENESIN\PHENYLEPHRINE HYDROCHLORIDE
     Indication: COUGH
     Dosage: 2 CAPLETS EVERY 4 HOURS, 1 WEEK WORTH
     Route: 065
  5. MUCINEX [Suspect]
     Active Substance: GUAIFENESIN
     Indication: RHINORRHOEA
     Dosage: 1 TO 2 TABLETS EVERY 12 HOURS
     Route: 065
  6. MUCINEX [Suspect]
     Active Substance: GUAIFENESIN
     Indication: COUGH

REACTIONS (1)
  - Drug ineffective [Not Recovered/Not Resolved]
